FAERS Safety Report 4734421-4 (Version None)
Quarter: 2005Q3

REPORT INFORMATION
  Report Type: 
  Country: None (occurrence: None)
  Receive Date: 20050804
  Receipt Date: 20050725
  Transmission Date: 20060218
  Serious: Yes (Other)
  Sender: FDA-Public Use
  Company Number: US-BRISTOL-MYERS SQUIBB COMPANY-13049283

PATIENT
  Age: 12 Year
  Sex: Male

DRUGS (8)
  1. METHOTREXATE [Suspect]
     Indication: BONE SARCOMA
     Dosage: DOSE UNIT = G/M SUP (2)
     Route: 042
  2. CISPLATIN [Concomitant]
     Indication: BONE SARCOMA
  3. DOXORUBICIN [Concomitant]
     Indication: BONE SARCOMA
  4. LEUCOVORIN [Concomitant]
  5. OXYCODONE [Concomitant]
  6. ACYCLOVIR [Concomitant]
  7. CO-TRIMOXAZOLE [Concomitant]
  8. ONDANSETRON [Concomitant]

REACTIONS (1)
  - ERYTHEMA [None]
